FAERS Safety Report 20654043 (Version 2)
Quarter: 2022Q2

REPORT INFORMATION
  Report Type: Report from Study
  Country: FI (occurrence: FI)
  Receive Date: 20220330
  Receipt Date: 20220406
  Transmission Date: 20220721
  Serious: Yes (Other)
  Sender: FDA-Public Use
  Company Number: FI-MYLANLABS-2022M1022859

PATIENT
  Age: 24 Year
  Sex: Female

DRUGS (11)
  1. CLOZAPINE [Suspect]
     Active Substance: CLOZAPINE
     Indication: Schizophrenia
     Dosage: UNK
     Dates: start: 201910, end: 2019
  2. CLOZAPINE [Suspect]
     Active Substance: CLOZAPINE
     Dosage: UNK
     Dates: start: 20220119, end: 20220201
  3. CLOZAPINE [Suspect]
     Active Substance: CLOZAPINE
     Dosage: 62.5 MILLIGRAM, QD, (62.5 MG DAILY)
     Dates: start: 20220310, end: 202203
  4. CLOZAPINE [Suspect]
     Active Substance: CLOZAPINE
     Dosage: 87.5 MILLIGRAM, QD
     Dates: start: 202203
  5. ZYPREXA [Concomitant]
     Active Substance: OLANZAPINE
     Dosage: 30 MILLIGRAM, QD
     Dates: end: 202203
  6. ZYPREXA [Concomitant]
     Active Substance: OLANZAPINE
     Dosage: 15 MILLIGRAM, QD
     Dates: start: 202203
  7. VALPROIC ACID [Concomitant]
     Active Substance: VALPROIC ACID
     Dosage: 1600 MILLIGRAM, QD
  8. QUETIAPINE FUMARATE [Concomitant]
     Active Substance: QUETIAPINE FUMARATE
     Dosage: 300 MILLIGRAM, QD
  9. LITHIUM CARBONATE [Concomitant]
     Active Substance: LITHIUM CARBONATE
     Dosage: 900 MILLIGRAM, QD
  10. MULTIVITA PLUS [Concomitant]
     Dosage: 1 DOSAGE FORM, QD
  11. DEVISOL [Concomitant]
     Dosage: 20 MICROGRAM, QD

REACTIONS (3)
  - Neutropenia [Recovered/Resolved]
  - Off label use [Unknown]
  - Therapy cessation [Unknown]

NARRATIVE: CASE EVENT DATE: 20190101
